FAERS Safety Report 6772245-7 (Version None)
Quarter: 2010Q2

REPORT INFORMATION
  Report Type: 
  Country: None (occurrence: None)
  Receive Date: 20100616
  Receipt Date: 20100325
  Transmission Date: 20101027
  Serious: No
  Sender: FDA-Public Use
  Company Number: US-ASTRAZENECA-2010SE05361

PATIENT
  Age: 90 Year
  Sex: Female
  Weight: 78.9 kg

DRUGS (2)
  1. PULMICORT RESPULES [Suspect]
     Indication: ASTHMA
     Route: 055
  2. ASPIRIN [Concomitant]

REACTIONS (5)
  - APHONIA [None]
  - DIZZINESS [None]
  - DRY THROAT [None]
  - PRESYNCOPE [None]
  - THROAT IRRITATION [None]
